FAERS Safety Report 23501476 (Version 2)
Quarter: 2024Q2

REPORT INFORMATION
  Report Type: Report from Study
  Country: US (occurrence: US)
  Receive Date: 20240208
  Receipt Date: 20240619
  Transmission Date: 20240715
  Serious: Yes (Hospitalization, Other)
  Sender: FDA-Public Use
  Company Number: US-TAKEDA-2024TUS002859

PATIENT
  Sex: Male

DRUGS (4)
  1. FRUQUINTINIB [Suspect]
     Active Substance: FRUQUINTINIB
     Indication: Colon cancer
     Dosage: 2 MILLIGRAM
     Route: 048
     Dates: start: 20231228, end: 20240129
  2. FRUQUINTINIB [Suspect]
     Active Substance: FRUQUINTINIB
     Dosage: 4 MILLIGRAM
     Route: 048
  3. AMLODIPINE BESYLATE [Concomitant]
     Active Substance: AMLODIPINE BESYLATE
     Dosage: 10 MILLIGRAM
     Route: 048
  4. VITAMINS [Concomitant]
     Active Substance: VITAMINS
     Dosage: UNK
     Route: 048

REACTIONS (6)
  - Colon cancer [Not Recovered/Not Resolved]
  - Abdominal abscess [Unknown]
  - Pleural effusion [Not Recovered/Not Resolved]
  - Blood pressure increased [Recovering/Resolving]
  - Hypoaesthesia [Not Recovered/Not Resolved]
  - Abdominal pain lower [Not Recovered/Not Resolved]
